FAERS Safety Report 5625827-X (Version None)
Quarter: 2008Q1

REPORT INFORMATION
  Report Type: 
  Country: None (occurrence: None)
  Receive Date: 20080214
  Receipt Date: 20080204
  Transmission Date: 20080703
  Serious: Yes (Other)
  Sender: FDA-Public Use
  Company Number: CA-NOVOPROD-272035

PATIENT

DRUGS (34)
  1. NIASTASE [Suspect]
     Indication: HAEMORRHAGE
     Dosage: 9.6 MG, UNK
     Route: 042
     Dates: start: 20061114, end: 20061114
  2. LABETALOL HCL [Concomitant]
     Dates: start: 20061114, end: 20061121
  3. THIOPENTAL SODIUM [Concomitant]
     Dates: start: 20061114, end: 20061121
  4. CEFAZOLIN [Concomitant]
     Dates: start: 20061114, end: 20061121
  5. RANITIDINE [Concomitant]
     Dates: start: 20061114, end: 20061121
  6. MAGNESIUM SULPHATE                 /00167401/ [Concomitant]
     Dates: start: 20061114, end: 20061121
  7. POTASSIUM CHLORIDE [Concomitant]
     Dates: start: 20061114, end: 20061121
  8. SODIUM ACID PHOSPHATE [Concomitant]
     Dates: start: 20061114, end: 20061121
  9. SODIUM PHOSPHATES [Concomitant]
     Dates: start: 20061114, end: 20061121
  10. CALCIUM CHLORIDE                   /00203801/ [Concomitant]
     Dates: start: 20061114, end: 20061121
  11. HEPARIN [Concomitant]
     Dates: start: 20061114, end: 20061121
  12. PANTOPRAZOLE [Concomitant]
     Dates: start: 20061114, end: 20061121
  13. PHYTONADIONE [Concomitant]
     Dates: start: 20061114, end: 20061121
  14. PROTAMINE SULFATE [Concomitant]
     Dates: start: 20061114, end: 20061121
  15. DIMENHYDRINATE [Concomitant]
     Dates: start: 20061114, end: 20061121
  16. MIDAZOLAM HCL [Concomitant]
     Dates: start: 20061114, end: 20061121
  17. MORPHINE [Concomitant]
     Dates: start: 20061114, end: 20061121
  18. APROTININ [Concomitant]
     Dates: start: 20061114, end: 20061121
  19. MEPERIDINE HCL [Concomitant]
     Dates: start: 20061114, end: 20061121
  20. FENTANYL [Concomitant]
     Dates: start: 20061114, end: 20061121
  21. ACETAMINOPHEN [Concomitant]
     Dates: start: 20061114, end: 20061121
  22. AMIODARONE HCL [Concomitant]
     Dates: start: 20061114, end: 20061121
  23. METOCLOPRAMIDE [Concomitant]
     Dates: start: 20061114, end: 20061121
  24. ODANSE [Concomitant]
     Dates: start: 20061114, end: 20061121
  25. DOCUSATE SODIUM [Concomitant]
     Dates: start: 20061114, end: 20061121
  26. ACETYLSALICYLIC ACID SRT [Concomitant]
     Dates: start: 20061114, end: 20061121
  27. LANSOPRAZOLE [Concomitant]
     Dates: start: 20061114, end: 20061121
  28. BISACODYL [Concomitant]
     Dates: start: 20061114, end: 20061121
  29. LORAZEPAM [Concomitant]
     Dates: start: 20061114, end: 20061121
  30. FUROSEMIDE [Concomitant]
     Dates: start: 20061114, end: 20061121
  31. HYDRALAZINE HCL [Concomitant]
     Dates: start: 20061114, end: 20061121
  32. NITROGLYCERIN [Concomitant]
     Dates: start: 20061114, end: 20061121
  33. ZOPICLONE [Concomitant]
     Dates: start: 20061114, end: 20061121
  34. AMLODIPINE [Concomitant]
     Dates: start: 20061114, end: 20061121

REACTIONS (1)
  - CEREBROVASCULAR ACCIDENT [None]
